FAERS Safety Report 7079897-5 (Version None)
Quarter: 2010Q4

REPORT INFORMATION
  Report Type: 
  Country: None (occurrence: None)
  Receive Date: 20101102
  Receipt Date: 20101025
  Transmission Date: 20110411
  Serious: Yes (Hospitalization)
  Sender: FDA-Public Use
  Company Number: FR-PFIZER INC-2010136140

PATIENT
  Age: 75 Year
  Sex: Male

DRUGS (3)
  1. ZYVOX [Suspect]
     Dosage: 600 MG, 2X/DAY
     Route: 048
     Dates: start: 20100903, end: 20100918
  2. TARGOCID [Suspect]
     Indication: OSTEOMYELITIS
     Dosage: 400 MG, 2X/DAY
     Route: 042
     Dates: start: 20100824, end: 20100903
  3. RIFADIN [Suspect]
     Dosage: 300 MG, 1X/DAY
     Route: 048
     Dates: start: 20100824, end: 20100918

REACTIONS (1)
  - RENAL FAILURE CHRONIC [None]
